FAERS Safety Report 9298705 (Version 1)
Quarter: 2013Q2

REPORT INFORMATION
  Report Type: Spontaneous
  Country: MX (occurrence: MX)
  Receive Date: 20130520
  Receipt Date: 20130520
  Transmission Date: 20140414
  Serious: Yes (Death, Life-Threatening, Other)
  Sender: FDA-Public Use
  Company Number: MX-ROCHE-1224070

PATIENT
  Age: 32 Year
  Sex: Female

DRUGS (6)
  1. MABTHERA [Suspect]
     Indication: VASCULITIS
     Route: 042
     Dates: start: 20120828
  2. MABTHERA [Suspect]
     Route: 042
     Dates: start: 20121030
  3. MABTHERA [Suspect]
     Dosage: 1G IN 1000 ML DURING 8 HOURS.
     Route: 042
  4. MYCOPHENOLATE MOFETIL [Suspect]
     Indication: PRODUCT USED FOR UNKNOWN INDICATION
     Route: 065
  5. PREDNISONE [Concomitant]
     Route: 065
  6. PENTOXIFYLLINE [Concomitant]
     Route: 065

REACTIONS (13)
  - Septic shock [Fatal]
  - Cardio-respiratory arrest [Unknown]
  - Neoplasm [Unknown]
  - Respiratory distress [Recovered/Resolved]
  - Face oedema [Recovered/Resolved]
  - Nasal congestion [Recovered/Resolved]
  - Oedema peripheral [Recovered/Resolved]
  - Asthenia [Unknown]
  - Asthenia [Unknown]
  - Productive cough [Unknown]
  - Nervous system disorder [Unknown]
  - Gait disturbance [Unknown]
  - Respiratory tract infection [Unknown]
